FAERS Safety Report 7943152-9 (Version None)
Quarter: 2011Q4

REPORT INFORMATION
  Report Type: 
  Country: None (occurrence: None)
  Receive Date: 20111128
  Receipt Date: 20111116
  Transmission Date: 20120403
  Serious: Yes (Other)
  Sender: FDA-Public Use
  Company Number: PHHY2011JP101094

PATIENT
  Age: 45 Year
  Sex: Female

DRUGS (1)
  1. DIOVAN HCT [Suspect]
     Dosage: 1 DF, DAILY
     Route: 048

REACTIONS (2)
  - HYPERAESTHESIA [None]
  - HERPES ZOSTER [None]
